FAERS Safety Report 14512520 (Version 1)
Quarter: 2018Q1

REPORT INFORMATION
  Report Type: Spontaneous
  Country: US (occurrence: US)
  Receive Date: 20180209
  Receipt Date: 20180209
  Transmission Date: 20180509
  Serious: No
  Sender: FDA-Public Use
  Company Number: US-ALLERGAN-1714616US

PATIENT
  Age: 72 Year
  Sex: Male
  Weight: 94.33 kg

DRUGS (3)
  1. RESTASIS [Suspect]
     Active Substance: CYCLOSPORINE
     Indication: DRY EYE
     Dosage: 1 GTT, BID
     Dates: start: 2009
  2. MURO 128 [Concomitant]
     Active Substance: SODIUM CHLORIDE
     Indication: EYE DISORDER
     Dosage: UNK UNK, BID
     Route: 047
  3. XARELTO [Concomitant]
     Active Substance: RIVAROXABAN
     Indication: ANTICOAGULANT THERAPY
     Dosage: UNK
     Route: 048
     Dates: start: 201701

REACTIONS (2)
  - Ocular hyperaemia [Recovered/Resolved]
  - Cataract [Recovered/Resolved]

NARRATIVE: CASE EVENT DATE: 201701
